FAERS Safety Report 6214477-2 (Version None)
Quarter: 2009Q2

REPORT INFORMATION
  Report Type: 
  Country: None (occurrence: None)
  Receive Date: 20090604
  Receipt Date: 20090522
  Transmission Date: 20091009
  Serious: Yes (Other)
  Sender: FDA-Public Use
  Company Number: US-TEVA-196269USA

PATIENT
  Sex: Female

DRUGS (1)
  1. ZOLPIDEM TARTRATE 5 + 10 MG TABLETS [Suspect]
     Route: 048

REACTIONS (14)
  - ABNORMAL BEHAVIOUR [None]
  - ABNORMAL DREAMS [None]
  - AMNESIA [None]
  - ANXIETY [None]
  - CONFUSIONAL STATE [None]
  - COORDINATION ABNORMAL [None]
  - DISORIENTATION [None]
  - FEELING ABNORMAL [None]
  - ILLOGICAL THINKING [None]
  - LACK OF SPONTANEOUS SPEECH [None]
  - MUSCLE TWITCHING [None]
  - PANIC REACTION [None]
  - SOMNAMBULISM [None]
  - SPEECH DISORDER [None]
